FAERS Safety Report 25287900 (Version 1)
Quarter: 2025Q2

REPORT INFORMATION
  Report Type: Report from Study
  Country: CA (occurrence: CA)
  Receive Date: 20250509
  Receipt Date: 20250509
  Transmission Date: 20250716
  Serious: Yes (Other)
  Sender: JAZZ
  Company Number: CA-JAZZ PHARMACEUTICALS-2025-CA-010927

PATIENT
  Sex: Female

DRUGS (4)
  1. EPIDIOLEX [Suspect]
     Active Substance: CANNABIDIOL
     Indication: Product used for unknown indication
     Dosage: 2.10 MILLILITER, BID FOR 14 DAYS
  2. EPIDIOLEX [Suspect]
     Active Substance: CANNABIDIOL
     Dosage: 4.15 MILLILITER, BID FOR 14 DAYS
  3. EPIDIOLEX [Suspect]
     Active Substance: CANNABIDIOL
     Dosage: 6.20 MILLILITER, BID
  4. EPIDIOLEX [Suspect]
     Active Substance: CANNABIDIOL

REACTIONS (2)
  - Seizure [Unknown]
  - Drug ineffective [Unknown]
